FAERS Safety Report 5012333-9 (Version None)
Quarter: 2006Q2

REPORT INFORMATION
  Report Type: 
  Country: None (occurrence: None)
  Receive Date: 20060525
  Receipt Date: 20060525
  Transmission Date: 20061013
  Serious: Yes (Hospitalization, Other)
  Sender: FDA-Public Use
  Company Number: None

PATIENT
  Age: 64 Year
  Sex: Male
  Weight: 106.6 kg

DRUGS (2)
  1. MIRTAZAPINE [Suspect]
     Indication: DEPRESSION
     Dosage: 30 MG PO QHS
     Route: 048
     Dates: start: 20060206
  2. MIRTAZAPINE [Suspect]
     Indication: INSOMNIA
     Dosage: 30 MG PO QHS
     Route: 048
     Dates: start: 20060206

REACTIONS (2)
  - SUPRAVENTRICULAR TACHYCARDIA [None]
  - VENTRICULAR TACHYCARDIA [None]
